FAERS Safety Report 12965335 (Version 1)
Quarter: 2016Q4

REPORT INFORMATION
  Report Type: Spontaneous
  Country: US (occurrence: US)
  Receive Date: 20161122
  Receipt Date: 20161122
  Transmission Date: 20170207
  Serious: Yes (Hospitalization)
  Sender: FDA-Public Use
  Company Number: US-SMITH AND NEPHEW, INC-2016SMT01013

PATIENT
  Age: 57 Year
  Sex: Male

DRUGS (2)
  1. REGRANEX [Suspect]
     Active Substance: BECAPLERMIN
     Indication: DIABETIC ULCER
     Dosage: UNK UNK, ONCE
     Route: 061
     Dates: start: 20161024, end: 20161024
  2. MEDIHONEY [Suspect]
     Active Substance: HONEY
     Dosage: UNK
     Dates: start: 201610

REACTIONS (2)
  - Hospitalisation [Recovered/Resolved]
  - Skin discolouration [Recovering/Resolving]

NARRATIVE: CASE EVENT DATE: 201610
